FAERS Safety Report 25077571 (Version 1)
Quarter: 2025Q1

REPORT INFORMATION
  Report Type: Report from Study
  Country: US (occurrence: US)
  Receive Date: 20250314
  Receipt Date: 20250314
  Transmission Date: 20250409
  Serious: Yes (Other)
  Sender: ABBVIE
  Company Number: US-ABBVIE-6154771

PATIENT
  Age: 70 Year
  Sex: Female

DRUGS (2)
  1. HUMIRA [Suspect]
     Active Substance: ADALIMUMAB
     Indication: Rheumatoid arthritis
     Dosage: CITRATE FREE?STOP DATE: 2025?FORM STRENGTH: 40 MILLIGRAM
     Route: 058
     Dates: start: 20250216
  2. HUMIRA [Suspect]
     Active Substance: ADALIMUMAB
     Dosage: START DATE TEXT: 3-4 YEARS AGO?FORM STRENGTH: 40 MILLIGRAM
     Route: 058
     Dates: end: 202412

REACTIONS (6)
  - Osteoarthritis [Recovered/Resolved]
  - Hip arthroplasty [Unknown]
  - Interstitial lung disease [Unknown]
  - Dysphonia [Unknown]
  - Rheumatoid lung [Unknown]
  - Asthma [Recovering/Resolving]

NARRATIVE: CASE EVENT DATE: 20240101
